FAERS Safety Report 7827566-3 (Version None)
Quarter: 2011Q4

REPORT INFORMATION
  Report Type: 
  Country: None (occurrence: None)
  Receive Date: 20111020
  Receipt Date: 20111017
  Transmission Date: 20120403
  Serious: Yes (Other)
  Sender: FDA-Public Use
  Company Number: BR-BAYER-BR-2007-014527

PATIENT
  Age: 36 Year
  Sex: Female

DRUGS (5)
  1. BETASERON [Suspect]
     Indication: RELAPSING-REMITTING MULTIPLE SCLEROSIS
     Dosage: 9.6 MIU, QOD
     Route: 058
     Dates: start: 19990301, end: 20070201
  2. BETASERON [Suspect]
     Dosage: UNK
     Route: 058
     Dates: start: 20080101
  3. ANTACID [CALCIUM CARBONATE] [Concomitant]
     Indication: DYSPEPSIA
     Dosage: 1 DF, QD
     Route: 048
     Dates: start: 20070301
  4. ANTACID [CALCIUM CARBONATE] [Concomitant]
     Indication: NAUSEA
  5. GENERAL ANESTHESIA [Concomitant]
     Indication: CAESAREAN SECTION
     Dosage: UNK
     Dates: start: 20071129, end: 20071129

REACTIONS (1)
  - CAESAREAN SECTION [None]
